FAERS Safety Report 8614948-5 (Version None)
Quarter: 2012Q3

REPORT INFORMATION
  Report Type: 
  Country: None (occurrence: None)
  Receive Date: 20120814
  Receipt Date: 20120814
  Transmission Date: 20120928
  Serious: Yes (Other)
  Sender: FDA-Public Use
  Company Number: None

PATIENT
  Age: 88 Year
  Sex: Female
  Weight: 74.8435 kg

DRUGS (1)
  1. ISOSORBIDE MONONITRATE [Suspect]
     Indication: CARDIAC DISORDER
     Dosage: 60MG 1 TABLET DAILY
     Dates: start: 20120217, end: 20120407

REACTIONS (4)
  - PRODUCT SUBSTITUTION ISSUE [None]
  - ANXIETY [None]
  - ASTHENIA [None]
  - DEPRESSION [None]
